FAERS Safety Report 21909915 (Version 3)
Quarter: 2023Q2

REPORT INFORMATION
  Report Type: Spontaneous
  Country: US (occurrence: US)
  Receive Date: 20230125
  Receipt Date: 20230410
  Transmission Date: 20230722
  Serious: No
  Sender: FDA-Public Use
  Company Number: US-PFIZER INC-202300034541

PATIENT
  Age: 75 Year
  Sex: Female
  Weight: 53.515 kg

DRUGS (16)
  1. PAXLOVID [Suspect]
     Active Substance: NIRMATRELVIR\RITONAVIR
     Indication: COVID-19 treatment
     Dosage: [PF-07321332 300MG]/[RITONAVIR 100MG]; 2X/DAY
     Route: 048
     Dates: start: 20230113, end: 20230117
  2. RECLAST [Concomitant]
     Active Substance: ZOLEDRONIC ACID
     Dosage: UNK
     Route: 041
     Dates: start: 20230103
  3. METOPROLOL SUCCINATE [Concomitant]
     Active Substance: METOPROLOL SUCCINATE
     Dosage: 25 MG, 2X/DAY (1 TABLET BY MOUTH TWICE A DAY)
     Route: 048
  4. LOSARTAN [Concomitant]
     Active Substance: LOSARTAN
     Dosage: 25 MG, 2X/DAY (1 TABLET BY MOUTH TWICE A DAY)
     Route: 048
  5. ATORVASTATIN [Concomitant]
     Active Substance: ATORVASTATIN
     Dosage: 20 MG, 1X/DAY ( 1 TABLET BY MOUTH EVERY EVENING)
     Route: 048
  6. ALENDRONATE [Concomitant]
     Active Substance: ALENDRONATE SODIUM
     Dosage: 10 MG, 1X/DAY (1 TABLET BY MOUTH ONCE DAILY)
     Route: 048
  7. CALCITONIN SALMON [Concomitant]
     Active Substance: CALCITONIN SALMON
     Dosage: 200 IU, 1X/DAY (INSTILL 1 SPRAY INTO ALTERNATING NOSTRILS ONCE DAILY)
  8. CELECOXIB [Concomitant]
     Active Substance: CELECOXIB
     Dosage: 200 MG, 1X/DAY (1 CAPSLE BY MOUTH ONCE DAILY)
     Route: 048
  9. CITRACAL + D3 [Concomitant]
     Dosage: UNK
  10. DIAZEPAM [Concomitant]
     Active Substance: DIAZEPAM
     Dosage: 5 MG, 2X/DAY (1 TABLET BYMOUTH TWICE A DAY IF NEEDED)
     Route: 048
  11. DICLOFENAC [Concomitant]
     Active Substance: DICLOFENAC
     Dosage: APPLY 2 GRAMS TO LOWER BACK FOUR TIMES A DAY AFTER THERAPY
  12. MAGNESIUM [Concomitant]
     Active Substance: MAGNESIUM
     Dosage: 400MG DAILY (2 TABLETS EVERY DAY BY ORAL ROUTE)
     Route: 048
  13. METAXALONE [Concomitant]
     Active Substance: METAXALONE
     Indication: Myalgia
     Dosage: 800 MG, 3X/DAY (1 TABLET BY MOUTH THREE TIMES A DAY IF NEEDED
     Route: 048
  14. VITAMINS NOS [Concomitant]
     Active Substance: VITAMINS
     Dosage: 1 DF, DAILY
  15. NAPROXEN [Concomitant]
     Active Substance: NAPROXEN
     Dosage: 500 MG, 2X/DAY (1 TABLET BY MOUTH TWICEA DAY WITH FOOD)
     Route: 048
  16. OMEGA 3 FISH OIL [FISH OIL] [Concomitant]
     Dosage: OMEGA3 1,000MG OM3S-FISH OIL 1,400MG CAPSULE BY ORAL ROUTE
     Route: 048

REACTIONS (8)
  - COVID-19 [Recovered/Resolved]
  - Disease recurrence [Recovered/Resolved]
  - Limb mass [Recovered/Resolved]
  - Pain in extremity [Recovered/Resolved]
  - Pain [Recovered/Resolved]
  - Nausea [Unknown]
  - Abdominal discomfort [Unknown]
  - Phlebitis superficial [Recovered/Resolved]

NARRATIVE: CASE EVENT DATE: 20230122
